FAERS Safety Report 6684980-X (Version None)
Quarter: 2010Q2

REPORT INFORMATION
  Report Type: 
  Country: None (occurrence: None)
  Receive Date: 20100416
  Receipt Date: 20100405
  Transmission Date: 20101027
  Serious: Yes (Death, Hospitalization)
  Sender: FDA-Public Use
  Company Number: CA-AMGEN-QUU403874

PATIENT
  Age: 66 Year
  Sex: Male
  Weight: 90.8 kg

DRUGS (5)
  1. ENBREL [Suspect]
     Indication: RHEUMATOID ARTHRITIS
     Route: 058
     Dates: start: 20090612, end: 20100225
  2. METHOTREXATE [Suspect]
     Indication: RHEUMATOID ARTHRITIS
     Route: 048
     Dates: start: 19940701, end: 20100225
  3. INDOMETHACIN [Concomitant]
     Route: 048
  4. FOLIC ACID [Concomitant]
     Route: 048
  5. OMEPRAZOLE [Concomitant]
     Route: 048

REACTIONS (20)
  - ARTHRALGIA [None]
  - ARTHRITIS INFECTIVE [None]
  - ATRIAL FIBRILLATION [None]
  - BACK PAIN [None]
  - CONTINUOUS HAEMODIAFILTRATION [None]
  - DEATH [None]
  - HYPOTENSION [None]
  - KLEBSIELLA INFECTION [None]
  - LACTIC ACIDOSIS [None]
  - LEUKOCYTOSIS [None]
  - NEUTROPENIA [None]
  - PNEUMONIA KLEBSIELLA [None]
  - PULMONARY HYPERTENSION [None]
  - RENAL INJURY [None]
  - RESPIRATORY FAILURE [None]
  - SEPTIC SHOCK [None]
  - STAPHYLOCOCCAL INFECTION [None]
  - STAPHYLOCOCCAL SEPSIS [None]
  - THROMBOCYTOPENIA [None]
  - WEANING FAILURE [None]
